FAERS Safety Report 10766067 (Version 3)
Quarter: 2017Q1

REPORT INFORMATION
  Report Type: Other
  Country: US (occurrence: US)
  Receive Date: 20150205
  Receipt Date: 20170210
  Transmission Date: 20170428
  Serious: Yes (Hospitalization)
  Sender: FDA-Public Use
  Company Number: US-ACORDA-ACO_103021_2014

PATIENT
  Sex: Female

DRUGS (1)
  1. AMPYRA [Suspect]
     Active Substance: DALFAMPRIDINE
     Indication: PRODUCT USED FOR UNKNOWN INDICATION
     Dosage: 10 MG, Q 12 HRS
     Route: 065
     Dates: start: 20140114

REACTIONS (6)
  - Urinary tract infection [Unknown]
  - Medication error [Unknown]
  - Incontinence [Unknown]
  - Bronchitis [Unknown]
  - Abdominal discomfort [Unknown]
  - Drug dose omission [Unknown]
